FAERS Safety Report 9413554 (Version 3)
Quarter: 2013Q3

REPORT INFORMATION
  Report Type: Spontaneous
  Country: TH (occurrence: None)
  Receive Date: 20130603
  Receipt Date: 20130711
  Transmission Date: 20140515
  Serious: Yes (Hospitalization)
  Sender: FDA-Public Use
  Company Number: 221661

PATIENT
  Age: 41 Year
  Sex: Female
  Weight: 36.1 kg

DRUGS (5)
  1. INNOHEP (TINZAPARIN SODIUM) [Suspect]
     Indication: DEEP VEIN THROMBOSIS
     Dosage: 7000 IU (7000 IU, 1 IN 1 D), SUBCUTANEOUS
     Route: 058
     Dates: start: 20121126, end: 20130517
  2. ISONIAZID (ISONIAZID) [Concomitant]
  3. RIFAMPICIN (RIFAMPICIN) [Concomitant]
  4. PYRAZINAMID (PYRAZINAMID) [Concomitant]
  5. ETHAMBUTOL (ETHAMBUTOL) [Concomitant]

REACTIONS (2)
  - Deep vein thrombosis [None]
  - Deep vein thrombosis [None]
